FAERS Safety Report 23437765 (Version 3)
Quarter: 2024Q1

REPORT INFORMATION
  Report Type: Spontaneous
  Country: US (occurrence: US)
  Receive Date: 20240124
  Receipt Date: 20240221
  Transmission Date: 20240410
  Serious: No
  Sender: FDA-Public Use
  Company Number: US-PFIZER INC-PV202400002171

PATIENT
  Age: 14 Year
  Sex: Male

DRUGS (2)
  1. GENOTROPIN [Suspect]
     Active Substance: SOMATROPIN
     Dosage: [2.6 MG ONE DAY]
  2. GENOTROPIN [Suspect]
     Active Substance: SOMATROPIN
     Dosage: [2.8 MG TWO DAYS]

REACTIONS (2)
  - Device malfunction [Unknown]
  - Device information output issue [Unknown]
